FAERS Safety Report 4541677-X (Version None)
Quarter: 2004Q4

REPORT INFORMATION
  Report Type: 
  Country: None (occurrence: None)
  Receive Date: 20041227
  Receipt Date: 20041221
  Transmission Date: 20050328
  Serious: Yes (Hospitalization)
  Sender: FDA-Public Use
  Company Number: 2004GB02468

PATIENT
  Age: 83 Year
  Sex: Female
  Weight: 55 kg

DRUGS (7)
  1. SEROQUEL [Suspect]
     Dosage: 100 MG DAILY, PO
     Route: 048
     Dates: start: 20030604
  2. ATENOLOL [Suspect]
     Indication: ANGINA PECTORIS
     Dosage: 20 MG QD PO
     Route: 048
     Dates: start: 19990101, end: 20040915
  3. ASPIRIN [Concomitant]
  4. ACETAMINOPHEN [Concomitant]
  5. AMITRIPTYLINE [Concomitant]
  6. SENNA [Concomitant]
  7. ATORVASTATIN [Concomitant]

REACTIONS (3)
  - DIZZINESS [None]
  - FALL [None]
  - UPPER LIMB FRACTURE [None]
